FAERS Safety Report 6057458-4 (Version None)
Quarter: 2009Q1

REPORT INFORMATION
  Report Type: 
  Country: None (occurrence: None)
  Receive Date: 20090129
  Receipt Date: 20090122
  Transmission Date: 20090719
  Serious: Yes (Death, Life-Threatening, Other)
  Sender: FDA-Public Use
  Company Number: PHHO2005JP02719

PATIENT
  Sex: Female
  Weight: 16 kg

DRUGS (17)
  1. NEORAL [Suspect]
     Indication: LUNG TRANSPLANT
     Dates: start: 20041214, end: 20050205
  2. NEORAL [Suspect]
     Dosage: UNK, UNK
     Dates: start: 20050206
  3. NEORAL [Suspect]
     Dosage: UNK, UNK
     Dates: start: 20040903
  4. CELLCEPT [Suspect]
     Indication: LUNG TRANSPLANT
     Dates: start: 20040924
  5. CELLCEPT [Suspect]
     Dates: start: 20041215
  6. PREDONINE [Suspect]
     Indication: LUNG TRANSPLANT
     Dosage: 15MG DAILY
     Dates: start: 20041214
  7. MORPHINE [Suspect]
  8. METHYLPREDNISOLONE [Suspect]
     Indication: LUNG TRANSPLANT
     Dosage: 250MG DAILY
     Dates: start: 20041214, end: 20041222
  9. SOLU-MEDROL [Concomitant]
     Dosage: 450MG DAILY
     Dates: start: 20041119, end: 20041121
  10. PROGRAF [Concomitant]
     Indication: BONE MARROW TRANSPLANT
     Dates: start: 20040301, end: 20040903
  11. MEROPEN [Concomitant]
     Dates: start: 20041213, end: 20050212
  12. CEFOTIAM [Concomitant]
     Dates: start: 20041213, end: 20041215
  13. GENTAMICIN [Concomitant]
     Dates: start: 20041220, end: 20041222
  14. VANCOMYCIN [Concomitant]
     Dosage: 600MG DAILY
     Dates: start: 20041221, end: 20041227
  15. DENOSINE [Concomitant]
     Dosage: 150MG DAILY
     Dates: start: 20041220, end: 20050212
  16. LYMPHOGLOBULINE [Concomitant]
  17. THALIDOMIDE [Concomitant]
     Dates: start: 20041110, end: 20041207

REACTIONS (8)
  - ASPERGILLOSIS [None]
  - HEPATIC FUNCTION ABNORMAL [None]
  - ILEUS PARALYTIC [None]
  - MULTI-ORGAN FAILURE [None]
  - PLATELET COUNT DECREASED [None]
  - RENAL FAILURE [None]
  - STENOTROPHOMONAS SEPSIS [None]
  - WHITE BLOOD CELL COUNT DECREASED [None]
